FAERS Safety Report 6439236-7 (Version None)
Quarter: 2009Q4

REPORT INFORMATION
  Report Type: 
  Country: None (occurrence: None)
  Receive Date: 20091113
  Receipt Date: 20090421
  Transmission Date: 20100525
  Serious: Yes (Other)
  Sender: FDA-Public Use
  Company Number: -SAAVPROD-200912526US

PATIENT
  Age: 60 Year
  Sex: Female
  Weight: 70.31 kg

DRUGS (5)
  1. FLUOROURACIL [Suspect]
     Dosage: DOSE AS USED: APPLY TO ENTIRE NOSE TWICE DAILY
     Route: 061
     Dates: start: 20081007, end: 20081021
  2. FLUOROURACIL [Suspect]
     Indication: SKIN DISORDER
     Dosage: DOSE AS USED: APPLY TO ENTIRE NOSE TWICE DAILY
     Route: 061
     Dates: start: 20081007, end: 20081021
  3. DESONIDE [Concomitant]
     Indication: INFLAMMATION
     Dosage: DOSE AS USED: UNK
     Dates: start: 20081201
  4. OXYTROL [Concomitant]
     Dates: start: 20070501
  5. ASTELIN [Concomitant]
     Dates: start: 20071001

REACTIONS (1)
  - APPLICATION SITE ERYTHEMA [None]
